FAERS Safety Report 12615213 (Version 2)
Quarter: 2016Q4

REPORT INFORMATION
  Report Type: Spontaneous
  Country: US (occurrence: US)
  Receive Date: 20160802
  Receipt Date: 20161110
  Transmission Date: 20170207
  Serious: Yes (Hospitalization)
  Sender: FDA-Public Use
  Company Number: US-PFIZER INC-2016348889

PATIENT
  Age: 73 Year
  Sex: Male
  Weight: 93.44 kg

DRUGS (21)
  1. TIKOSYN [Suspect]
     Active Substance: DOFETILIDE
     Indication: ATRIAL FIBRILLATION
     Dosage: 500 MG, 2X/DAY
  2. TIKOSYN [Suspect]
     Active Substance: DOFETILIDE
     Dosage: 500 UG, 2X/DAY
  3. WARFARIN SODIUM. [Concomitant]
     Active Substance: WARFARIN SODIUM
     Indication: ATRIAL FIBRILLATION
     Dosage: 30 MG, 1X/DAY
     Route: 048
  4. CARVEDILOL. [Concomitant]
     Active Substance: CARVEDILOL
     Indication: ISCHAEMIC CARDIOMYOPATHY
     Dosage: 6.25 MG, 2X/DAY
     Route: 048
  5. SPIRONOLACTONE. [Concomitant]
     Active Substance: SPIRONOLACTONE
     Indication: ISCHAEMIC CARDIOMYOPATHY
     Dosage: 25 MG, 1X/DAY
     Route: 048
  6. COQ 10 [Concomitant]
     Active Substance: UBIDECARENONE
     Dosage: 100 MG, 1X/DAY (WITH A MEAL)
  7. ATORVASTATIN CALCIUM. [Concomitant]
     Active Substance: ATORVASTATIN CALCIUM
     Indication: TYPE V HYPERLIPIDAEMIA
     Dosage: 40 MG, 1X/DAY
     Route: 048
  8. OMEPRAZOLE. [Concomitant]
     Active Substance: OMEPRAZOLE
     Dosage: 20 MG, 1X/DAY (BEFORE BEDTIME)
     Dates: end: 201609
  9. SPIRIVA [Concomitant]
     Active Substance: TIOTROPIUM BROMIDE MONOHYDRATE
     Dosage: 2 DF, 1X/DAY (2.5 MCG/ACT )
     Dates: end: 201604
  10. WARFARIN SODIUM. [Concomitant]
     Active Substance: WARFARIN SODIUM
     Dosage: 3 MG, 1X/DAY
     Route: 048
  11. FUROSEMIDE. [Concomitant]
     Active Substance: FUROSEMIDE
     Indication: ISCHAEMIC CARDIOMYOPATHY
     Dosage: 20 MG, 1X/DAY, (EACH MORNING)
     Route: 048
  12. ENTRESTO [Concomitant]
     Active Substance: SACUBITRIL\VALSARTAN
     Indication: ISCHAEMIC CARDIOMYOPATHY
     Dosage: UNK, 2X/DAY, (SACUBITRIL 49MG /VALSARTAN 51 MG)
     Route: 048
  13. KLOR-CON [Concomitant]
     Active Substance: POTASSIUM CHLORIDE
     Indication: ISCHAEMIC CARDIOMYOPATHY
     Dosage: 10 UG, 2X/DAY
     Route: 048
     Dates: end: 201604
  14. TIKOSYN [Suspect]
     Active Substance: DOFETILIDE
     Dosage: 250 UG, 2X/DAY
     Dates: start: 201604
  15. NIZORAL [Concomitant]
     Active Substance: KETOCONAZOLE
     Dosage: UNK, AS NEEDED (ONCE A DAY)
     Dates: end: 201607
  16. NITROGLYCERINE [Concomitant]
     Active Substance: NITROGLYCERIN
     Dosage: 0.4 MG, AS NEEDED (LAST USED 2002)
     Route: 060
  17. PULMICORT TURBUHALER [Concomitant]
     Active Substance: BUDESONIDE
     Dosage: 1 DF, 2X/DAY (90 MCG/ACT )
     Dates: end: 201604
  18. TIKOSYN [Suspect]
     Active Substance: DOFETILIDE
     Dosage: 250 UG, 2X/DAY
  19. ASPIRIN. [Concomitant]
     Active Substance: ASPIRIN
     Dosage: 81 MG, 1X/DAY
  20. ISOSORBIDE MONONITRATE. [Concomitant]
     Active Substance: ISOSORBIDE MONONITRATE
     Indication: ISCHAEMIC CARDIOMYOPATHY
     Dosage: 30 MG, 1X/DAY
     Route: 048
  21. VITAMIN D [Concomitant]
     Active Substance: CHOLECALCIFEROL
     Dosage: UNK (4000 TABLET AS DIRECTED)

REACTIONS (2)
  - Drug effect incomplete [Recovered/Resolved]
  - Heart rate increased [Recovered/Resolved]

NARRATIVE: CASE EVENT DATE: 201604
